FAERS Safety Report 21520015 (Version 6)
Quarter: 2024Q4

REPORT INFORMATION
  Report Type: Spontaneous
  Country: JP (occurrence: JP)
  Receive Date: 20221028
  Receipt Date: 20241127
  Transmission Date: 20250114
  Serious: Yes (Death, Hospitalization)
  Sender: AZURITY PHARMACEUTICALS
  Company Number: JP-ARBOR PHARMACEUTICALS, LLC-JP-2022ARB002737

PATIENT
  Age: 60 Year
  Sex: Male
  Weight: 65 kg

DRUGS (16)
  1. GLIADEL [Suspect]
     Active Substance: CARMUSTINE
     Indication: Glioblastoma
     Dosage: 7.7 MILLIGRAM(S), IN 8 TOTAL
     Route: 018
     Dates: start: 20211025, end: 20220105
  2. TEMOZOLOMIDE [Concomitant]
     Active Substance: TEMOZOLOMIDE
     Indication: Product used for unknown indication
     Dosage: UNK
     Route: 048
     Dates: start: 20211116
  3. CEFTRIAXONE [Concomitant]
     Active Substance: CEFTRIAXONE
     Indication: Meningitis eosinophilic
     Dosage: 2.0 GRAM(S) (1 GRAM(S), 1 IN 12 HOUR)
     Route: 042
     Dates: start: 20211223, end: 20211227
  4. AMLODIPINE BESYLATE\IRBESARTAN [Concomitant]
     Active Substance: AMLODIPINE BESYLATE\IRBESARTAN
     Indication: Product used for unknown indication
     Dosage: UNK
     Route: 048
  5. NAUZELIN [Concomitant]
     Active Substance: DOMPERIDONE
     Indication: Product used for unknown indication
     Dosage: UNK
     Route: 048
     Dates: start: 20211116
  6. SULFAMETHOXAZOLE\TRIMETHOPRIM [Concomitant]
     Active Substance: SULFAMETHOXAZOLE\TRIMETHOPRIM
     Indication: Product used for unknown indication
     Dosage: UNK
     Route: 048
     Dates: start: 20211116
  7. VIMPAT [Concomitant]
     Active Substance: LACOSAMIDE
     Indication: Product used for unknown indication
     Dosage: 100.0 MILLIGRAM(S) (50 MILLIGRAM(S), 1 IN 12 HOUR)
     Route: 048
     Dates: start: 20211009
  8. VIMPAT [Concomitant]
     Active Substance: LACOSAMIDE
     Dosage: 200.0 MILLIGRAM(S) (100 MILLIGRAM(S), 1 IN 12 HOUR)
     Route: 048
     Dates: start: 20211009
  9. MAGNESIUM OXIDE [Concomitant]
     Active Substance: MAGNESIUM OXIDE
     Indication: Product used for unknown indication
     Dosage: UNK
     Route: 048
     Dates: start: 20211113
  10. VONOPRAZAN FUMARATE [Concomitant]
     Active Substance: VONOPRAZAN FUMARATE
     Indication: Product used for unknown indication
     Dosage: UNK
     Route: 048
     Dates: start: 20211122
  11. RISPERIDONE [Concomitant]
     Active Substance: RISPERIDONE
     Indication: Product used for unknown indication
     Dosage: UNK
     Route: 048
     Dates: start: 20211111
  12. LEXAPRO [Concomitant]
     Active Substance: ESCITALOPRAM OXALATE
     Indication: Product used for unknown indication
     Dosage: UNK
     Route: 048
     Dates: start: 20211111
  13. DEXAMETHASONE SODIUM PHOSPHATE [Concomitant]
     Active Substance: DEXAMETHASONE SODIUM PHOSPHATE
     Indication: Meningitis eosinophilic
     Dosage: 6.6 MILLIGRAM(S) (6.6 MILLIGRAM(S), 1 IN 1 DAY)
     Route: 042
     Dates: start: 20211213, end: 20211215
  14. DEXAMETHASONE SODIUM PHOSPHATE [Concomitant]
     Active Substance: DEXAMETHASONE SODIUM PHOSPHATE
     Dosage: 3.3 MILLIGRAM(S) (3.3 MILLIGRAM(S), 1 IN 1 DAY)
     Route: 042
     Dates: start: 20211216, end: 20211218
  15. DEXAMETHASONE SODIUM PHOSPHATE [Concomitant]
     Active Substance: DEXAMETHASONE SODIUM PHOSPHATE
     Dosage: 1.65 MILLIGRAM(S) (1.65 MILLIGRAM(S), 1 IN 1 DAY)
     Route: 042
     Dates: start: 20211219, end: 20211221
  16. AMPICILLIN SODIUM\SULBACTAM SODIUM [Concomitant]
     Active Substance: AMPICILLIN SODIUM\SULBACTAM SODIUM
     Indication: Meningitis eosinophilic
     Dosage: UNK
     Route: 042
     Dates: start: 20211228, end: 20220126

REACTIONS (6)
  - Respiratory failure [Fatal]
  - Drug eruption [Recovering/Resolving]
  - Malignant neoplasm progression [Unknown]
  - Hypersensitivity [Recovering/Resolving]
  - Meningitis eosinophilic [Recovered/Resolved]
  - Hydrocephalus [Recovering/Resolving]

NARRATIVE: CASE EVENT DATE: 20210101
